FAERS Safety Report 7636861-2 (Version None)
Quarter: 2011Q3

REPORT INFORMATION
  Report Type: 
  Country: None (occurrence: None)
  Receive Date: 20110726
  Receipt Date: 20110718
  Transmission Date: 20111222
  Serious: Yes (Other)
  Sender: FDA-Public Use
  Company Number: US-JNJFOC-20110707563

PATIENT
  Sex: Female
  Weight: 50.8 kg

DRUGS (3)
  1. INVEGA SUSTENNA [Suspect]
     Route: 030
     Dates: start: 20110101
  2. INVEGA SUSTENNA [Suspect]
     Indication: BIPOLAR DISORDER
     Route: 030
     Dates: start: 20100701, end: 20110101
  3. ATIVAN [Concomitant]
     Indication: ANXIETY
     Route: 048

REACTIONS (6)
  - ABNORMAL BEHAVIOUR [None]
  - CARDIAC DISORDER [None]
  - SWELLING [None]
  - ANGER [None]
  - BREAST ENLARGEMENT [None]
  - WEIGHT INCREASED [None]
